FAERS Safety Report 7990183-9 (Version None)
Quarter: 2011Q4

REPORT INFORMATION
  Report Type: 
  Country: None (occurrence: None)
  Receive Date: 20111219
  Receipt Date: 20111207
  Transmission Date: 20120403
  Serious: Yes (Disabling, Other)
  Sender: FDA-Public Use
  Company Number: BR-BAYER-2011-112032

PATIENT
  Sex: Female
  Weight: 63 kg

DRUGS (3)
  1. MOXIFLOXACIN [Suspect]
     Indication: INFLUENZA
     Dosage: 1 DF, QD
     Route: 048
     Dates: start: 20111101
  2. SEKI [Concomitant]
     Indication: ALLERGIC COUGH
     Route: 048
  3. PRELONE [Concomitant]
     Indication: ALLERGIC COUGH
     Dosage: UNK
     Route: 048
     Dates: start: 20110101

REACTIONS (16)
  - LOSS OF CONSCIOUSNESS [None]
  - CARDIOVASCULAR DISORDER [None]
  - OEDEMA MOUTH [None]
  - SPEECH DISORDER [None]
  - STOMATITIS [None]
  - EYE MOVEMENT DISORDER [None]
  - DEPRESSION [None]
  - ABASIA [None]
  - FEELING ABNORMAL [None]
  - VEIN DISORDER [None]
  - APPARENT DEATH [None]
  - DIZZINESS [None]
  - THROMBOSIS [None]
  - MUSCULAR WEAKNESS [None]
  - HEART RATE INCREASED [None]
  - SENSATION OF HEAVINESS [None]
